FAERS Safety Report 9819232 (Version 4)
Quarter: 2014Q1

REPORT INFORMATION
  Report Type: Spontaneous
  Country: US (occurrence: US)
  Receive Date: 20140115
  Receipt Date: 20140220
  Transmission Date: 20141002
  Serious: Yes (Hospitalization)
  Sender: FDA-Public Use
  Company Number: US-ACTELION-A-NJ2014-93346

PATIENT
  Age: 66 Year
  Sex: Female

DRUGS (12)
  1. OPSUMIT [Suspect]
     Indication: PULMONARY ARTERIAL HYPERTENSION
     Dosage: 10 MG, QD
     Route: 048
     Dates: start: 20131202, end: 20140102
  2. REMODULIN [Suspect]
     Indication: COR PULMONALE CHRONIC
     Dosage: 67 NKM
     Route: 042
     Dates: start: 20130505
  3. LIDODERM [Concomitant]
  4. COUMADIN [Concomitant]
     Dosage: UNK
  5. TYLENOL [Concomitant]
  6. ASPIRIN [Concomitant]
  7. ALPRAZOLAM [Concomitant]
  8. NASONEX [Concomitant]
  9. FLECAINIDE [Concomitant]
  10. METOPROLOL [Concomitant]
     Dosage: UNK
  11. AMLODIPINE [Concomitant]
  12. LASIX [Concomitant]

REACTIONS (4)
  - Pulmonary veno-occlusive disease [Recovered/Resolved]
  - Pulmonary oedema [Recovered/Resolved]
  - Dyspnoea [Recovered/Resolved]
  - Pleural effusion [Recovered/Resolved]
